FAERS Safety Report 5834600-9 (Version None)
Quarter: 2008Q3

REPORT INFORMATION
  Report Type: 
  Country: None (occurrence: None)
  Receive Date: 20080801
  Receipt Date: 20080721
  Transmission Date: 20090109
  Serious: Yes (Other)
  Sender: FDA-Public Use
  Company Number: US019876

PATIENT
  Age: 50 Year
  Sex: Female
  Weight: 99.7913 kg

DRUGS (10)
  1. PROVIGIL [Suspect]
     Indication: MULTIPLE SCLEROSIS
     Dosage: 100 MG QD ORAL
     Route: 048
     Dates: start: 20070123
  2. UNSPECIFIED BLOOD PRESSURE MEDICATION [Suspect]
     Indication: BLOOD PRESSURE
     Dosage: UNK UNKNOWN
  3. UNSPECIFIED BLOOD PRESSURE MEDICATION [Suspect]
     Indication: BLOOD PRESSURE
     Dosage: REDUCED TO HALF THE ORIGINAL DOSE UNKNOWN
  4. ASPIRIN [Concomitant]
  5. PLAVIX [Concomitant]
  6. LOTREL [Concomitant]
  7. TOPROL-XL [Concomitant]
  8. OMEPRAZOLE [Concomitant]
  9. LYRICA [Concomitant]
  10. REBIF [Concomitant]

REACTIONS (8)
  - DEHYDRATION [None]
  - INCORRECT DOSE ADMINISTERED [None]
  - LOSS OF CONSCIOUSNESS [None]
  - MALAISE [None]
  - PRESYNCOPE [None]
  - RESPIRATORY ARREST [None]
  - VISUAL BRIGHTNESS [None]
  - VISUAL IMPAIRMENT [None]
